FAERS Safety Report 11151017 (Version 1)
Quarter: 2015Q2

REPORT INFORMATION
  Report Type: Spontaneous
  Country: US (occurrence: None)
  Receive Date: 20150528
  Receipt Date: 20150528
  Transmission Date: 20150821
  Serious: Yes (Hospitalization)
  Sender: FDA-Public Use
  Company Number: US-H14001-15-00786

PATIENT
  Age: 13 Year
  Sex: Male

DRUGS (1)
  1. AMOXICILLIN (AMOXICILLIN) (UNKNOWN) (AMOXICILLIN) [Suspect]
     Active Substance: AMOXICILLIN
     Indication: PHARYNGITIS STREPTOCOCCAL

REACTIONS (20)
  - Henoch-Schonlein purpura [None]
  - Peripheral swelling [None]
  - Mucous membrane disorder [None]
  - Clostridium difficile colitis [None]
  - Arthralgia [None]
  - Purpura [None]
  - Tachycardia [None]
  - Hypertension [None]
  - Acute kidney injury [None]
  - Dehydration [None]
  - Rash [None]
  - Vomiting [None]
  - Joint swelling [None]
  - Petechiae [None]
  - Haematuria [None]
  - Proteinuria [None]
  - Abdominal pain [None]
  - Hypersensitivity [None]
  - Haematochezia [None]
  - Hypoalbuminaemia [None]
